FAERS Safety Report 24195396 (Version 1)
Quarter: 2024Q3

REPORT INFORMATION
  Report Type: Spontaneous
  Country: IT (occurrence: IT)
  Receive Date: 20240809
  Receipt Date: 20240809
  Transmission Date: 20241016
  Serious: Yes (Other)
  Sender: GE HEALTHCARE
  Company Number: None

PATIENT
  Age: 74 Year
  Sex: Male

DRUGS (3)
  1. VISIPAQUE [Suspect]
     Active Substance: IODIXANOL
     Indication: Diagnostic procedure
     Dosage: 90 ML, TOTAL
     Route: 042
     Dates: start: 20240725, end: 20240725
  2. PREDNISONE [Concomitant]
     Active Substance: PREDNISONE
     Indication: Allergy prophylaxis
     Dosage: UNK
  3. TRIMETON [Concomitant]
     Active Substance: CHLORPHENIRAMINE MALEATE
     Indication: Allergy prophylaxis
     Dosage: UNK
     Route: 030

REACTIONS (3)
  - Presyncope [Recovered/Resolved]
  - Confusional state [Recovered/Resolved]
  - Malaise [Recovered/Resolved]

NARRATIVE: CASE EVENT DATE: 20240725
